FAERS Safety Report 8356554-6 (Version None)
Quarter: 2012Q2

REPORT INFORMATION
  Report Type: 
  Country: None (occurrence: None)
  Receive Date: 20120514
  Receipt Date: 20120507
  Transmission Date: 20120825
  Serious: Yes (Other)
  Sender: FDA-Public Use
  Company Number: PHHY2012CA039576

PATIENT
  Sex: Female

DRUGS (2)
  1. CLOZAPINE [Suspect]
     Dosage: UNK
  2. CLOZARIL [Suspect]
     Dosage: UNK
     Route: 048
     Dates: start: 20120117

REACTIONS (1)
  - PSYCHIATRIC DECOMPENSATION [None]
